FAERS Safety Report 13236792 (Version 4)
Quarter: 2017Q2

REPORT INFORMATION
  Report Type: Spontaneous
  Country: US (occurrence: US)
  Receive Date: 20170215
  Receipt Date: 20170630
  Transmission Date: 20170830
  Serious: Yes (Hospitalization, Other)
  Sender: FDA-Public Use
  Company Number: US-TEVA-740194USA

PATIENT
  Sex: Female

DRUGS (8)
  1. PROPAFENONE. [Suspect]
     Active Substance: PROPAFENONE
     Indication: ATRIAL FIBRILLATION
     Route: 065
     Dates: start: 201105
  2. CELEXA [Interacting]
     Active Substance: CITALOPRAM HYDROBROMIDE
     Route: 065
  3. OMEPRAZOLE. [Concomitant]
     Active Substance: OMEPRAZOLE
     Dosage: 40 MILLIGRAM DAILY;
  4. DIAZEPAM. [Interacting]
     Active Substance: DIAZEPAM
     Route: 065
  5. POTASSIUM CHLORIDE. [Concomitant]
     Active Substance: POTASSIUM CHLORIDE
     Dosage: 10 MILLIEQUIVALENTS DAILY;
  6. PRADAXA [Interacting]
     Active Substance: DABIGATRAN ETEXILATE MESYLATE
     Route: 065
  7. LASIX [Concomitant]
     Active Substance: FUROSEMIDE
     Dosage: 40 MILLIGRAM DAILY;
  8. TEMAZEPAM. [Concomitant]
     Active Substance: TEMAZEPAM

REACTIONS (20)
  - Hospitalisation [Unknown]
  - Paraesthesia [Unknown]
  - Hypoaesthesia [Unknown]
  - Swelling face [Unknown]
  - Feeling abnormal [Unknown]
  - Palpitations [Unknown]
  - Drug interaction [Unknown]
  - Headache [Unknown]
  - Insomnia [Unknown]
  - Swelling [Unknown]
  - Drug effect increased [Unknown]
  - Anxiety [Unknown]
  - Eye swelling [Unknown]
  - Limb discomfort [Unknown]
  - Vision blurred [Unknown]
  - Swollen tongue [Unknown]
  - Tremor [Unknown]
  - Loss of consciousness [Unknown]
  - Tinnitus [Unknown]
  - Dyspnoea [Unknown]
